FAERS Safety Report 15048788 (Version 1)
Quarter: 2018Q2

REPORT INFORMATION
  Report Type: Spontaneous
  Country: US (occurrence: US)
  Receive Date: 20180622
  Receipt Date: 20180622
  Transmission Date: 20180711
  Serious: No
  Sender: FDA-Public Use
  Company Number: US-PFIZER INC-2018252658

PATIENT
  Age: 61 Year
  Sex: Female
  Weight: 59 kg

DRUGS (4)
  1. PREGABALIN. [Suspect]
     Active Substance: PREGABALIN
     Indication: MULTIPLE SCLEROSIS
     Dosage: 100 MG, ONE IN THE MORNING AND THEN I WOULD TAKE TWO AT NIGHT
     Route: 048
  2. LYRICA [Suspect]
     Active Substance: PREGABALIN
     Indication: SPINAL FUSION SURGERY
  3. PREGABALIN. [Suspect]
     Active Substance: PREGABALIN
     Indication: SPINAL FUSION SURGERY
  4. LYRICA [Suspect]
     Active Substance: PREGABALIN
     Indication: MULTIPLE SCLEROSIS
     Dosage: 100 MG, ONE IN THE MORNING AND THEN I WOULD TAKE TWO AT NIGHT
     Route: 048

REACTIONS (2)
  - Gait disturbance [Unknown]
  - Fall [Unknown]
